FAERS Safety Report 13109896 (Version 1)
Quarter: 2017Q1

REPORT INFORMATION
  Report Type: Spontaneous
  Country: US (occurrence: US)
  Receive Date: 20170112
  Receipt Date: 20170112
  Transmission Date: 20170428
  Serious: No
  Sender: FDA-Public Use
  Company Number: US-ROCHE-1157441

PATIENT
  Age: 22 Year
  Sex: Female

DRUGS (1)
  1. CATHFLO ACTIVASE [Suspect]
     Active Substance: ALTEPLASE
     Indication: DEVICE OCCLUSION
     Route: 065

REACTIONS (2)
  - Thrombosis [Unknown]
  - Device occlusion [Unknown]

NARRATIVE: CASE EVENT DATE: 20120313
